FAERS Safety Report 8041119-6 (Version None)
Quarter: 2012Q1

REPORT INFORMATION
  Report Type: 
  Country: None (occurrence: None)
  Receive Date: 20120109
  Receipt Date: 20111223
  Transmission Date: 20120608
  Serious: Yes (Congenital Anomaly)
  Sender: FDA-Public Use
  Company Number: 1000025693

PATIENT

DRUGS (2)
  1. CITALOPRAM HYDROBROMIDE [Suspect]
     Dosage: 20 MG (20 MG, 1 IN 1 D), TRANSPLACENTAL
     Route: 064
     Dates: start: 20100727, end: 20101203
  2. FOLIC ACID [Concomitant]

REACTIONS (5)
  - ABORTION INDUCED [None]
  - FOETAL EXPOSURE DURING PREGNANCY [None]
  - RENAL DYSPLASIA [None]
  - CONGENITAL ANOMALY [None]
  - SYMPODIA [None]
